FAERS Safety Report 9229901 (Version 1)
Quarter: 2013Q2

REPORT INFORMATION
  Report Type: Report from Study
  Country: US (occurrence: US)
  Receive Date: 20130415
  Receipt Date: 20130415
  Transmission Date: 20140414
  Serious: Yes (Other)
  Sender: FDA-Public Use
  Company Number: US-TEVA-391506USA

PATIENT
  Age: 38 Year
  Sex: Male

DRUGS (8)
  1. CLOZAPINE [Suspect]
     Indication: SCHIZOAFFECTIVE DISORDER
     Dosage: 450 MILLIGRAM DAILY;
     Route: 048
     Dates: end: 20130311
  2. CHEMOTHERAPY [Concomitant]
  3. TRILAFON [Concomitant]
     Dosage: 12 MILLIGRAM DAILY;
  4. LITHIUM CARBONATE [Concomitant]
     Dosage: 1 Q AM; 1 1/2 HS
  5. LORAZEPAM [Concomitant]
     Indication: ANXIETY
     Dosage: BID PRN
  6. METFORMIN [Concomitant]
     Indication: DIABETES MELLITUS
     Dosage: 1000 MILLIGRAM DAILY;
  7. SIMVASTATIN [Concomitant]
     Indication: HYPERLIPIDAEMIA
     Dosage: 100 MILLIGRAM DAILY;
  8. ZOFRAN [Concomitant]
     Indication: NAUSEA

REACTIONS (4)
  - Colon cancer stage IV [Not Recovered/Not Resolved]
  - Metastases to liver [Unknown]
  - Granulocytopenia [Unknown]
  - Leukopenia [Unknown]
